FAERS Safety Report 9188687 (Version 1)
Quarter: 2013Q1

REPORT INFORMATION
  Report Type: Spontaneous
  Country: CA (occurrence: CA)
  Receive Date: 20130325
  Receipt Date: 20130325
  Transmission Date: 20140127
  Serious: Yes (Death, Hospitalization)
  Sender: FDA-Public Use
  Company Number: CA-B.I. PHARMACEUTICALS,INC./RIDGEFIELD-2013-CN-00447CN

PATIENT
  Age: 87 Year
  Sex: Male

DRUGS (2)
  1. PRADAXA [Suspect]
     Dosage: 220 MG
     Dates: start: 2012
  2. MEDICATION NOT FURTHER SPECIFIED [Concomitant]

REACTIONS (2)
  - Clostridium difficile infection [Fatal]
  - Pneumonia [Unknown]
